FAERS Safety Report 8544295-1 (Version None)
Quarter: 2012Q3

REPORT INFORMATION
  Report Type: 
  Country: None (occurrence: None)
  Receive Date: 20120719
  Receipt Date: 20120719
  Transmission Date: 20120928
  Serious: Yes (Other)
  Sender: FDA-Public Use
  Company Number: None

PATIENT
  Age: 49 Year
  Sex: Male
  Weight: 79.3795 kg

DRUGS (2)
  1. GABAPENTIN [Suspect]
     Indication: PAIN
     Dosage: 300MG DAILY PO : 1100MG DAILY PO
     Route: 048
     Dates: start: 20100820, end: 20120116
  2. GABAPENTIN [Suspect]
     Indication: PAIN
     Dosage: 300MG DAILY PO : 1100MG DAILY PO
     Route: 048
     Dates: start: 20120116, end: 20120308

REACTIONS (14)
  - AMNESIA [None]
  - VISUAL IMPAIRMENT [None]
  - WEIGHT INCREASED [None]
  - MOOD SWINGS [None]
  - IRRITABILITY [None]
  - AGGRESSION [None]
  - DISTURBANCE IN ATTENTION [None]
  - LEGAL PROBLEM [None]
  - HOSTILITY [None]
  - CRIME [None]
  - PSYCHOMOTOR HYPERACTIVITY [None]
  - ANGER [None]
  - SUICIDAL IDEATION [None]
  - SOMNOLENCE [None]
